FAERS Safety Report 24080548 (Version 1)
Quarter: 2024Q3

REPORT INFORMATION
  Report Type: Spontaneous
  Country: US (occurrence: None)
  Receive Date: 20240711
  Receipt Date: 20240711
  Transmission Date: 20241016
  Serious: Yes (Hospitalization)
  Sender: Public
  Company Number: None

PATIENT
  Sex: Male

DRUGS (11)
  1. TOBRAMYCIN [Suspect]
     Active Substance: TOBRAMYCIN\TOBRAMYCIN SULFATE
  2. ASMANEX [Concomitant]
     Active Substance: MOMETASONE FUROATE
  3. CUVPOSA [Concomitant]
     Active Substance: GLYCOPYRROLATE
  4. LEVALBUTEROL [Concomitant]
     Active Substance: LEVALBUTEROL
  5. LEVSIN/SL [Concomitant]
  6. NEXIUM [Concomitant]
     Active Substance: ESOMEPRAZOLE MAGNESIUM
  7. ONDANSETRON [Concomitant]
     Active Substance: ONDANSETRON
  8. PEPCID AC [Concomitant]
     Active Substance: FAMOTIDINE
  9. PRIMIDONE [Concomitant]
     Active Substance: PRIMIDONE
  10. PROCHLORPER [Concomitant]
  11. REGLAN [Concomitant]
     Active Substance: METOCLOPRAMIDE HYDROCHLORIDE

REACTIONS (1)
  - Oxygen saturation decreased [None]
